FAERS Safety Report 9684057 (Version 2)
Quarter: 2013Q4

REPORT INFORMATION
  Report Type: Spontaneous
  Country: US (occurrence: US)
  Receive Date: 20131112
  Receipt Date: 20131203
  Transmission Date: 20140711
  Serious: Yes (Disabling, Other)
  Sender: FDA-Public Use
  Company Number: US-PFIZER INC-2013322704

PATIENT
  Age: 56 Year
  Sex: Female
  Weight: 90.7 kg

DRUGS (2)
  1. DILANTIN-125 [Suspect]
     Indication: CONVULSION
     Dosage: 50 MG, 4X/DAY
     Dates: start: 2011
  2. PROZAC [Concomitant]
     Indication: DEPRESSION
     Dosage: 40 MG, DAILY

REACTIONS (1)
  - Brain injury [Unknown]
